FAERS Safety Report 15057904 (Version 1)
Quarter: 2018Q2

REPORT INFORMATION
  Report Type: Report from Study
  Country: DE (occurrence: DE)
  Receive Date: 20180625
  Receipt Date: 20180625
  Transmission Date: 20180711
  Serious: Yes (Life-Threatening, Other)
  Sender: FDA-Public Use
  Company Number: DE-ADIENNEP-2018AD000326

PATIENT
  Sex: Male
  Weight: 85 kg

DRUGS (2)
  1. CARMUSTINE [Concomitant]
     Active Substance: CARMUSTINE
     Dosage: 400 MG/M2
  2. TEPADINA [Suspect]
     Active Substance: THIOTEPA
     Indication: NON-HODGKIN^S LYMPHOMA
     Dosage: 1 DOSAGE 20 MG/KG DAILY
     Dates: start: 20160210

REACTIONS (13)
  - Leukopenia [Recovered/Resolved]
  - Anaemia [Recovered/Resolved]
  - Oral pain [Recovered/Resolved]
  - Leukopenia [Recovered/Resolved]
  - Cachexia [Recovered/Resolved]
  - Hepatic steatosis [Recovered/Resolved]
  - Diarrhoea [Recovered/Resolved]
  - Thrombocytopenia [Recovered/Resolved]
  - Mucosal inflammation [Recovered/Resolved]
  - Klebsiella sepsis [Recovered/Resolved]
  - Anaemia [Recovered/Resolved]
  - Neutropenia [Recovered/Resolved]
  - Gamma-glutamyltransferase increased [Recovered/Resolved]

NARRATIVE: CASE EVENT DATE: 2016
